FAERS Safety Report 5718803-X (Version None)
Quarter: 2008Q2

REPORT INFORMATION
  Report Type: 
  Country: None (occurrence: None)
  Receive Date: 20080425
  Receipt Date: 20080423
  Transmission Date: 20081010
  Serious: Yes (Life-Threatening)
  Sender: FDA-Public Use
  Company Number: US-BOEHRINGER INGELHEIM GMBH, GERMANY-2008-BP-05166BP

PATIENT
  Sex: Male
  Weight: 115 kg

DRUGS (5)
  1. ATROVENT HFA [Suspect]
     Indication: ASTHMA
     Route: 048
     Dates: start: 20080203
  2. SPIRIVA [Suspect]
     Indication: ASTHMA
     Dates: start: 20080203
  3. ALBUTEROL [Concomitant]
     Indication: ASTHMA
  4. ALBUTEROL [Concomitant]
  5. AZMACORT [Concomitant]
     Indication: ASTHMA

REACTIONS (2)
  - ASTHMA [None]
  - DYSPNOEA [None]
